FAERS Safety Report 4382428-1 (Version None)
Quarter: 2004Q2

REPORT INFORMATION
  Report Type: 
  Country: None (occurrence: None)
  Receive Date: 20040617
  Receipt Date: 20040602
  Transmission Date: 20050107
  Serious: Yes (Life-Threatening, Hospitalization, Other)
  Sender: FDA-Public Use
  Company Number: 00/00190-SHC

PATIENT
  Age: 69 Year
  Sex: Male

DRUGS (1)
  1. FLUDARA [Suspect]
     Indication: CHRONIC LYMPHOCYTIC LEUKAEMIA
     Dosage: 2 COURSES, INTRAVENOUS
     Route: 042
     Dates: start: 20000320, end: 20000325

REACTIONS (7)
  - PARANEOPLASTIC SYNDROME [None]
  - PNEUMONIA [None]
  - PSEUDOMONAS INFECTION [None]
  - SCAR [None]
  - SEPSIS [None]
  - STAPHYLOCOCCAL INFECTION [None]
  - TONGUE PARALYSIS [None]
